FAERS Safety Report 5248596-4 (Version None)
Quarter: 2007Q1

REPORT INFORMATION
  Report Type: 
  Country: None (occurrence: None)
  Receive Date: 20070222
  Receipt Date: 20061030
  Transmission Date: 20070707
  Serious: Yes (Hospitalization)
  Sender: FDA-Public Use
  Company Number: DSA_29395_2007

PATIENT
  Age: 73 Year
  Sex: Male

DRUGS (7)
  1. MONOTILDIEM [Suspect]
     Indication: ACUTE MYOCARDIAL INFARCTION
     Dosage: 200 MG QD PO
     Route: 048
  2. CORVASAL [Suspect]
     Dosage: 6 MG Q DAY PO
     Route: 048
  3. TRIATEC [Suspect]
     Dosage: 2.5 MG Q DAY PO
     Route: 048
     Dates: end: 20060901
  4. TRIATEC [Suspect]
     Dosage: DF
  5. VASTEN [Suspect]
     Dosage: 20 MG QD PO
     Route: 048
  6. ALIMTA [Suspect]
     Indication: LUNG ADENOCARCINOMA
     Dosage: 600 MQ/SQM IV
     Route: 042
     Dates: start: 20060901
  7. PREVISCAN [Suspect]
     Indication: DEEP VEIN THROMBOSIS
     Dosage: 20 MG QD PO
     Route: 048

REACTIONS (4)
  - HAEMATOTOXICITY [None]
  - NEUTROPHIL COUNT DECREASED [None]
  - PLATELET COUNT DECREASED [None]
  - RENAL FAILURE CHRONIC [None]
